FAERS Safety Report 8776642 (Version 2)
Quarter: 2012Q4

REPORT INFORMATION
  Report Type: 
  Country: CA (occurrence: CA)
  Receive Date: 20120910
  Receipt Date: 20121008
  Transmission Date: 20130627
  Serious: Yes (Other)
  Sender: FDA-Public Use
  Company Number: PHHY2012CA077631

PATIENT
  Sex: Female

DRUGS (5)
  1. CLOZARIL [Suspect]
     Indication: SCHIZOAFFECTIVE DISORDER
     Route: 048
     Dates: start: 20020129
  2. CLOZARIL [Suspect]
     Dosage: 50 mg, QD
     Route: 048
     Dates: start: 20061121, end: 20121002
  3. CLOZARIL [Suspect]
     Dosage: 200 mg, at 9 PM
     Dates: start: 20061121, end: 20121002
  4. APO-FLUOXETINE [Concomitant]
     Dosage: 60 mg, QAM
  5. APO-CLONAZEPAM [Concomitant]
     Dosage: 0.5 mg, QID

REACTIONS (2)
  - Lung neoplasm malignant [Unknown]
  - Lung adenocarcinoma [Unknown]
